FAERS Safety Report 5800120-0 (Version None)
Quarter: 2008Q3

REPORT INFORMATION
  Report Type: 
  Country: None (occurrence: None)
  Receive Date: 20080702
  Receipt Date: 20080702
  Transmission Date: 20090109
  Serious: Yes (Other)
  Sender: FDA-Public Use
  Company Number: None

PATIENT
  Age: 64 Year
  Sex: Female
  Weight: 63.5036 kg

DRUGS (3)
  1. DIGITEK 0.25MG MYLAN/BERTEK [Suspect]
     Dosage: TAKE ONE TABLET DAILY ORALLY, SINCE 2/15/08
     Route: 048
  2. TOPROL-XL [Concomitant]
  3. CYMBALTA [Concomitant]

REACTIONS (7)
  - CONFUSIONAL STATE [None]
  - DIZZINESS [None]
  - NAUSEA [None]
  - NECK PAIN [None]
  - PAIN [None]
  - PAIN IN EXTREMITY [None]
  - PHARMACEUTICAL PRODUCT COMPLAINT [None]
